FAERS Safety Report 8269365-7 (Version None)
Quarter: 2012Q2

REPORT INFORMATION
  Report Type: 
  Country: None (occurrence: None)
  Receive Date: 20120409
  Receipt Date: 20120329
  Transmission Date: 20120825
  Serious: Yes (Hospitalization)
  Sender: FDA-Public Use
  Company Number: DE-ROCHE-1056039

PATIENT
  Sex: Female

DRUGS (1)
  1. AVASTIN [Suspect]
     Indication: MACULAR OEDEMA
     Route: 031
     Dates: start: 20110321

REACTIONS (5)
  - DIZZINESS [None]
  - SPEECH DISORDER [None]
  - CEREBRAL ISCHAEMIA [None]
  - TREMOR [None]
  - CEREBROVASCULAR ACCIDENT [None]
